FAERS Safety Report 9644678 (Version 2)
Quarter: 2014Q1

REPORT INFORMATION
  Report Type: Spontaneous
  Country: IL (occurrence: IL)
  Receive Date: 20131025
  Receipt Date: 20140116
  Transmission Date: 20141002
  Serious: Yes (Hospitalization, Other)
  Sender: FDA-Public Use
  Company Number: IL-JNJFOC-20131009078

PATIENT
  Age: 70 Year
  Sex: Female

DRUGS (6)
  1. TOPAMAX [Suspect]
     Indication: EPILEPSY
     Route: 048
  2. LEVETIRACETAM [Suspect]
     Indication: CONVULSION
     Route: 065
  3. LEVETIRACETAM [Suspect]
     Indication: EXTRAPYRAMIDAL DISORDER
     Route: 065
  4. VALPROATE NOS [Suspect]
     Indication: EPILEPSY
     Route: 048
  5. VALPROATE NOS [Suspect]
     Indication: EPILEPSY
     Route: 048
  6. GABAPENTIN [Concomitant]
     Route: 065

REACTIONS (8)
  - Convulsion [Recovered/Resolved]
  - Syncope [Unknown]
  - Stupor [Unknown]
  - Disorientation [Unknown]
  - Cognitive disorder [Unknown]
  - Asterixis [Unknown]
  - Extrapyramidal disorder [Unknown]
  - Drug ineffective [Recovered/Resolved]
